FAERS Safety Report 4946448-8 (Version None)
Quarter: 2006Q1

REPORT INFORMATION
  Report Type: 
  Country: None (occurrence: None)
  Receive Date: 20060317
  Receipt Date: 20060307
  Transmission Date: 20060701
  Serious: Yes (Hospitalization, Other)
  Sender: FDA-Public Use
  Company Number: ES-GILEAD-2006-0009302

PATIENT
  Sex: Male

DRUGS (3)
  1. VIREAD [Suspect]
     Indication: HIV INFECTION
  2. DIDANOSINE [Suspect]
     Indication: HIV INFECTION
  3. STAVUDINE [Suspect]
     Indication: HIV INFECTION

REACTIONS (8)
  - ANOREXIA [None]
  - FATIGUE [None]
  - HYPERLACTACIDAEMIA [None]
  - MITOCHONDRIAL CYTOPATHY [None]
  - MITOCHONDRIAL DNA DEPLETION [None]
  - OXYGEN CONSUMPTION DECREASED [None]
  - OXYGEN SATURATION DECREASED [None]
  - WEIGHT DECREASED [None]
